FAERS Safety Report 21515211 (Version 4)
Quarter: 2023Q4

REPORT INFORMATION
  Report Type: Spontaneous
  Country: US (occurrence: US)
  Receive Date: 20221027
  Receipt Date: 20231218
  Transmission Date: 20240109
  Serious: Yes (Other)
  Sender: FDA-Public Use
  Company Number: US-PFIZER INC-PV202200089743

PATIENT
  Age: 67 Year

DRUGS (1)
  1. TIKOSYN [Suspect]
     Active Substance: DOFETILIDE
     Dosage: QUANTITY FOR 90 DAYS: 180

REACTIONS (2)
  - Blindness [Unknown]
  - Hypoacusis [Unknown]
